FAERS Safety Report 7233274-2 (Version None)
Quarter: 2011Q1

REPORT INFORMATION
  Report Type: 
  Country: None (occurrence: None)
  Receive Date: 20110106
  Receipt Date: 20101227
  Transmission Date: 20110831
  Serious: No
  Sender: FDA-Public Use
  Company Number: 2010-01061

PATIENT
  Sex: Male

DRUGS (1)
  1. ZICAM COLD REMEDY PLUS RAPIDMELTS [Suspect]
     Dosage: ^FOR 2 DAYS^

REACTIONS (2)
  - AGEUSIA [None]
  - ANOSMIA [None]
